FAERS Safety Report 4518353-2 (Version None)
Quarter: 2004Q4

REPORT INFORMATION
  Report Type: 
  Country: None (occurrence: None)
  Receive Date: 20041202
  Receipt Date: 20041119
  Transmission Date: 20050328
  Serious: Yes (Other)
  Sender: FDA-Public Use
  Company Number: 2004096028

PATIENT
  Age: 62 Year
  Sex: Male
  Weight: 92.9874 kg

DRUGS (7)
  1. DILANTIN KAPSEAL [Suspect]
     Indication: CONVULSION
     Dosage: 100 MG (100 MG, 1 IN 1 D), ORAL
     Route: 048
  2. PENOBARBITAL (PHENOBARBITAL) [Concomitant]
  3. NAPROXEN [Concomitant]
  4. ENALAPRIL (ENALAPRIL) [Concomitant]
  5. DOXAZOSIN MESYLATE [Concomitant]
  6. FINASTERIDE [Concomitant]
  7. ASPIRIN [Concomitant]

REACTIONS (3)
  - ARTHRITIS [None]
  - BACK PAIN [None]
  - INTERVERTEBRAL DISC DISORDER [None]
